FAERS Safety Report 25482890 (Version 1)
Quarter: 2025Q2

REPORT INFORMATION
  Report Type: Report from Study
  Country: US (occurrence: US)
  Receive Date: 20250626
  Receipt Date: 20250626
  Transmission Date: 20250717
  Serious: Yes (Other)
  Sender: ROCHE
  Company Number: US-ROCHE-10000236821

PATIENT
  Age: 31 Year
  Sex: Female
  Weight: 60.3 kg

DRUGS (13)
  1. OCRELIZUMAB [Suspect]
     Active Substance: OCRELIZUMAB
     Indication: Multiple sclerosis
     Dosage: EVERY SIX MONTHS
     Route: 065
     Dates: start: 20210818
  2. OCRELIZUMAB [Suspect]
     Active Substance: OCRELIZUMAB
     Route: 065
     Dates: start: 20210831
  3. OCRELIZUMAB [Suspect]
     Active Substance: OCRELIZUMAB
     Route: 065
     Dates: start: 20220222
  4. OCRELIZUMAB [Suspect]
     Active Substance: OCRELIZUMAB
     Route: 065
     Dates: start: 20220822
  5. OCRELIZUMAB [Suspect]
     Active Substance: OCRELIZUMAB
     Route: 065
     Dates: start: 20230221
  6. OCRELIZUMAB [Suspect]
     Active Substance: OCRELIZUMAB
     Route: 065
     Dates: start: 20230822
  7. OCRELIZUMAB [Suspect]
     Active Substance: OCRELIZUMAB
     Route: 065
     Dates: start: 20240229
  8. OCRELIZUMAB [Suspect]
     Active Substance: OCRELIZUMAB
     Route: 065
     Dates: start: 20240907
  9. OCRELIZUMAB [Suspect]
     Active Substance: OCRELIZUMAB
     Route: 042
     Dates: start: 20250322
  10. CHOLECALCIFEROL [Concomitant]
     Active Substance: CHOLECALCIFEROL
     Dosage: 5000 UNITS
     Route: 048
     Dates: start: 20210607
  11. ESCITALOPRAM OXALATE [Concomitant]
     Active Substance: ESCITALOPRAM OXALATE
     Dosage: 1 TABLET (10 MG)
     Route: 048
     Dates: start: 20210510, end: 20250211
  12. MODAFINIL [Concomitant]
     Active Substance: MODAFINIL
     Route: 048
     Dates: start: 20220913, end: 20250507
  13. ZOLPIDEM [Concomitant]
     Active Substance: ZOLPIDEM TARTRATE
     Route: 048
     Dates: start: 20210605, end: 20250507

REACTIONS (2)
  - Abortion spontaneous [Unknown]
  - Maternal exposure before pregnancy [Unknown]

NARRATIVE: CASE EVENT DATE: 20250313
